FAERS Safety Report 10243023 (Version 1)
Quarter: 2014Q2

REPORT INFORMATION
  Report Type: Spontaneous
  Country: FR (occurrence: FR)
  Receive Date: 20140618
  Receipt Date: 20140618
  Transmission Date: 20141212
  Serious: Yes (Other)
  Sender: FDA-Public Use
  Company Number: FR-009507513-1406FRA007235

PATIENT
  Sex: Male

DRUGS (2)
  1. ISENTRESS [Suspect]
     Indication: HIV INFECTION
     Dosage: UNK
     Route: 048
     Dates: start: 2009
  2. COCAINE [Suspect]
     Indication: DRUG DEPENDENCE
     Dosage: UNK

REACTIONS (1)
  - Pancreatitis [Unknown]
